FAERS Safety Report 7068003-9 (Version None)
Quarter: 2010Q4

REPORT INFORMATION
  Report Type: 
  Country: None (occurrence: None)
  Receive Date: 20101028
  Receipt Date: 20100806
  Transmission Date: 20110411
  Serious: No
  Sender: FDA-Public Use
  Company Number: US-MYLANLABS-2010S1014427

PATIENT
  Age: 67 Year
  Sex: Male

DRUGS (3)
  1. TAMSULOSIN HCL [Suspect]
     Indication: PROSTATOMEGALY
     Route: 048
     Dates: start: 20100716, end: 20100728
  2. TAMSULOSIN HCL [Suspect]
     Route: 048
     Dates: start: 20100730, end: 20100801
  3. AVODART [Concomitant]

REACTIONS (1)
  - DIARRHOEA [None]
